FAERS Safety Report 4277591-7 (Version None)
Quarter: 2004Q1

REPORT INFORMATION
  Report Type: 
  Country: None (occurrence: None)
  Receive Date: 20040122
  Receipt Date: 20010713
  Transmission Date: 20041129
  Serious: Yes (Other)
  Sender: FDA-Public Use
  Company Number: WAES 01071342

PATIENT
  Age: 52 Year
  Sex: Male

DRUGS (4)
  1. ALPHAGAN [Concomitant]
  2. COSOPT [Suspect]
     Indication: GLAUCOMA
     Route: 047
     Dates: start: 19990101
  3. XALATAN [Concomitant]
  4. PILOCARPINE [Suspect]

REACTIONS (5)
  - EYE IRRITATION [None]
  - PHOTOPHOBIA [None]
  - PHOTOSENSITIVITY REACTION [None]
  - RETINAL TEAR [None]
  - VITREOUS DETACHMENT [None]
